FAERS Safety Report 4616490-5 (Version None)
Quarter: 2005Q1

REPORT INFORMATION
  Report Type: 
  Country: None (occurrence: None)
  Receive Date: 20050318
  Receipt Date: 20050302
  Transmission Date: 20050727
  Serious: Yes (Death)
  Sender: FDA-Public Use
  Company Number: L04-USA-07403-50

PATIENT
  Age: 32 Year
  Sex: Female

DRUGS (4)
  1. DILTIAZEM [Suspect]
  2. CLONAZEPAM [Suspect]
     Dosage: 40 MG QD PO
     Route: 048
  3. PAROXETINE HCL [Concomitant]
  4. QUETIAPINE FUMARATE [Concomitant]

REACTIONS (8)
  - ATRIOVENTRICULAR BLOCK COMPLETE [None]
  - COMPLETED SUICIDE [None]
  - DIZZINESS [None]
  - ELECTROCARDIOGRAM QRS COMPLEX SHORTENED [None]
  - HYPOTENSION [None]
  - INTENTIONAL MISUSE [None]
  - NAUSEA [None]
  - VOMITING [None]
